FAERS Safety Report 9355669 (Version 2)
Quarter: 2013Q3

REPORT INFORMATION
  Report Type: Report from Study
  Country: PH (occurrence: PH)
  Receive Date: 20130619
  Receipt Date: 20130703
  Transmission Date: 20140515
  Serious: Yes (Death)
  Sender: FDA-Public Use
  Company Number: PHHY2013PH062242

PATIENT
  Sex: Female

DRUGS (2)
  1. ACLASTA [Suspect]
     Indication: OSTEOPOROSIS
     Dosage: ANNUALLY
     Route: 042
  2. ACLASTA [Suspect]
     Dosage: ANNUALLY
     Route: 042
     Dates: start: 20120613

REACTIONS (1)
  - Pancreatic carcinoma [Fatal]
